FAERS Safety Report 26177389 (Version 1)
Quarter: 2025Q4

REPORT INFORMATION
  Report Type: Spontaneous
  Country: JP (occurrence: JP)
  Receive Date: 20251219
  Receipt Date: 20251219
  Transmission Date: 20260117
  Serious: Yes (Other)
  Sender: SANOFI AVENTIS
  Company Number: JP-SA-2025SA306880

PATIENT
  Age: 68 Year
  Sex: Male

DRUGS (1)
  1. DUPIXENT [Suspect]
     Active Substance: DUPILUMAB
     Indication: Prurigo
     Route: 058

REACTIONS (3)
  - Panniculitis [Unknown]
  - Erythema nodosum [Recovering/Resolving]
  - Off label use [Unknown]
